FAERS Safety Report 21898218 (Version 3)
Quarter: 2023Q1

REPORT INFORMATION
  Report Type: Report from Study
  Country: CN (occurrence: CN)
  Receive Date: 20230123
  Receipt Date: 20230214
  Transmission Date: 20230418
  Serious: Yes (Hospitalization)
  Sender: FDA-Public Use
  Company Number: CN-BRISTOL-MYERS SQUIBB COMPANY-2023-009781

PATIENT
  Age: 46 Year
  Sex: Male
  Weight: 69 kg

DRUGS (25)
  1. NIVOLUMAB [Suspect]
     Active Substance: NIVOLUMAB
     Indication: Adenocarcinoma gastric
     Route: 041
     Dates: start: 20230106, end: 20230106
  2. NIVOLUMAB [Suspect]
     Active Substance: NIVOLUMAB
     Indication: Metastases to liver
  3. NIVOLUMAB [Suspect]
     Active Substance: NIVOLUMAB
     Indication: Metastases to peritoneum
  4. TST-001 [Suspect]
     Active Substance: TST-001
     Indication: Adenocarcinoma gastric
     Route: 041
     Dates: start: 20230106, end: 20230106
  5. TST-001 [Suspect]
     Active Substance: TST-001
     Indication: Metastases to liver
  6. TST-001 [Suspect]
     Active Substance: TST-001
     Indication: Metastases to peritoneum
  7. OXALIPLATIN [Suspect]
     Active Substance: OXALIPLATIN
     Indication: Adenocarcinoma gastric
     Route: 041
     Dates: start: 20230106, end: 20230106
  8. OXALIPLATIN [Suspect]
     Active Substance: OXALIPLATIN
     Indication: Metastases to liver
  9. OXALIPLATIN [Suspect]
     Active Substance: OXALIPLATIN
     Indication: Metastases to peritoneum
  10. CAPECITABINE [Suspect]
     Active Substance: CAPECITABINE
     Indication: Adenocarcinoma gastric
  11. CAPECITABINE [Suspect]
     Active Substance: CAPECITABINE
     Indication: Metastases to liver
  12. CAPECITABINE [Suspect]
     Active Substance: CAPECITABINE
     Indication: Metastases to peritoneum
  13. GLICLAZIDE [Concomitant]
     Active Substance: GLICLAZIDE
     Indication: Product used for unknown indication
     Route: 048
     Dates: start: 202207
  14. METFORMIN HYDROCHLORIDE [Concomitant]
     Active Substance: METFORMIN HYDROCHLORIDE
     Indication: Diabetes mellitus
     Route: 048
     Dates: start: 202207
  15. DEXAMETHASONE SODIUM PHOSPHATE [Concomitant]
     Active Substance: DEXAMETHASONE SODIUM PHOSPHATE
     Indication: Allergy prophylaxis
     Dosage: SINGLE DOSE
     Route: 041
     Dates: start: 20230106
  16. FAMOTIDINE [Concomitant]
     Active Substance: FAMOTIDINE
     Indication: Prophylaxis
     Dosage: SINGLE DOSE
     Route: 041
     Dates: start: 20230106, end: 20230108
  17. GLUTATHIONE [Concomitant]
     Active Substance: GLUTATHIONE
     Indication: Prophylaxis
     Dosage: SINGLE DOSE
     Route: 041
     Dates: start: 20230106, end: 20230108
  18. TROPISETRON HYDROCHLORIDE [Concomitant]
     Active Substance: TROPISETRON HYDROCHLORIDE
     Indication: Product used for unknown indication
     Dosage: SINGLE DOSE
     Route: 041
     Dates: start: 20230106, end: 20230108
  19. APREPITANT [Concomitant]
     Active Substance: APREPITANT
     Indication: Product used for unknown indication
     Dosage: SINGLE DOSE
     Route: 048
     Dates: start: 20230106
  20. APREPITANT [Concomitant]
     Active Substance: APREPITANT
     Dosage: SINGLE DOSE
     Route: 048
  21. FOSAPREPITANT DIMEGLUMINE [Concomitant]
     Active Substance: FOSAPREPITANT DIMEGLUMINE
     Indication: Prophylaxis of nausea and vomiting
     Dosage: SINGLE DOSE
     Route: 041
     Dates: start: 20230109
  22. FOSAPREPITANT DIMEGLUMINE [Concomitant]
     Active Substance: FOSAPREPITANT DIMEGLUMINE
     Indication: Prophylaxis of nausea and vomiting
  23. CARBOHYDRATES [Concomitant]
     Active Substance: CARBOHYDRATES
     Indication: Electrolyte substitution therapy
     Dosage: SINGLE DOSE
     Route: 041
     Dates: start: 20230107, end: 20230108
  24. ENTERAL NUTRITIONAL POWDER (TP) [Concomitant]
     Indication: Nutritional supplementation
     Dosage: SINGLE DOSE
     Route: 048
     Dates: start: 20230107
  25. AMINO ACIDS, SOURCE UNSPECIFIED [Concomitant]
     Active Substance: AMINO ACIDS, SOURCE UNSPECIFIED
     Indication: Nutritional supplementation
     Dosage: SINGLE DOSE
     Route: 041
     Dates: start: 20230108, end: 20230109

REACTIONS (1)
  - Hypertension [Recovering/Resolving]

NARRATIVE: CASE EVENT DATE: 20230109
